FAERS Safety Report 7960542-9 (Version None)
Quarter: 2011Q4

REPORT INFORMATION
  Report Type: 
  Country: None (occurrence: None)
  Receive Date: 20111206
  Receipt Date: 20111128
  Transmission Date: 20120403
  Serious: Yes (Other)
  Sender: FDA-Public Use
  Company Number: PHHY2011BR104703

PATIENT
  Age: 56 Year

DRUGS (3)
  1. FORMOTEROL FUMARATE [Suspect]
     Indication: DYSPNOEA
  2. FORADIL [Suspect]
     Indication: DYSPNOEA
  3. SYMBICORT [Suspect]

REACTIONS (5)
  - MALAISE [None]
  - DYSPNOEA [None]
  - WEIGHT INCREASED [None]
  - FEELING ABNORMAL [None]
  - DIZZINESS [None]
